FAERS Safety Report 6836100-6 (Version None)
Quarter: 2010Q3

REPORT INFORMATION
  Report Type: 
  Country: None (occurrence: None)
  Receive Date: 20100713
  Receipt Date: 20100630
  Transmission Date: 20110219
  Serious: Yes (Other)
  Sender: FDA-Public Use
  Company Number: JP-AMGEN-US399288

PATIENT
  Age: 65 Year
  Sex: Female

DRUGS (2)
  1. ENBREL [Suspect]
     Indication: RHEUMATOID ARTHRITIS
     Dosage: UNKNOWN
     Route: 058
  2. METHOTREXATE [Concomitant]
     Indication: RHEUMATOID ARTHRITIS
     Dosage: UNSPECIFIED
     Route: 048

REACTIONS (5)
  - CONDITION AGGRAVATED [None]
  - LUNG DISORDER [None]
  - ORGANISING PNEUMONIA [None]
  - PNEUMONIA BACTERIAL [None]
  - RHEUMATOID ARTHRITIS [None]
